FAERS Safety Report 6878122-5 (Version None)
Quarter: 2010Q2

REPORT INFORMATION
  Report Type: 
  Country: None (occurrence: None)
  Receive Date: 20100616
  Receipt Date: 20100317
  Transmission Date: 20101027
  Serious: No
  Sender: FDA-Public Use
  Company Number: DSA_42810_2010

PATIENT
  Sex: Male

DRUGS (12)
  1. XENAZINE [Suspect]
     Indication: HUNTINGTON'S CHOREA
     Dosage: 12.5 MG BID ORAL
     Route: 048
     Dates: start: 20100308
  2. HALOPERIDOL [Concomitant]
  3. TRAZODONE [Concomitant]
  4. XANAX [Concomitant]
  5. PLAVIX [Concomitant]
  6. LORATADINE [Concomitant]
  7. DIGOXIN [Concomitant]
  8. ASPIRIN [Concomitant]
  9. PRAVACHOL [Concomitant]
  10. ZETIA [Concomitant]
  11. BYSTOLIC [Concomitant]
  12. LISINOPRIL [Concomitant]

REACTIONS (5)
  - FATIGUE [None]
  - INSOMNIA [None]
  - MALAISE [None]
  - SEDATION [None]
  - SOMNOLENCE [None]
